FAERS Safety Report 17365920 (Version 3)
Quarter: 2021Q2

REPORT INFORMATION
  Report Type: Spontaneous
  Country: DE (occurrence: DE)
  Receive Date: 20200204
  Receipt Date: 20210623
  Transmission Date: 20210716
  Serious: Yes (Hospitalization)
  Sender: FDA-Public Use
  Company Number: NVSC2020DE024114

PATIENT
  Age: 59 Year
  Sex: Male

DRUGS (8)
  1. MONO EMBOLEX [Concomitant]
     Active Substance: CERTOPARIN SODIUM
     Indication: PRODUCT USED FOR UNKNOWN INDICATION
     Dosage: 3 ML,QD
     Route: 058
  2. DEXAMETHASONE. [Concomitant]
     Active Substance: DEXAMETHASONE
     Dosage: 12 MG, BID
     Route: 048
  3. PACLITAXEL. [Suspect]
     Active Substance: PACLITAXEL
     Indication: NON-SMALL CELL LUNG CANCER
     Dosage: 200 MG/M2, MOST RECENT DOSE PRIOR TO EVNET ONSET ON 10/OCT/2019
     Route: 042
     Dates: start: 20191010, end: 20191010
  4. BEVACIZUMAB. [Suspect]
     Active Substance: BEVACIZUMAB
     Indication: NON-SMALL CELL LUNG CANCER
     Dosage: 15 MG/KG, MOST RECENT DOSE PRIOR TO EVNET ONSET ON 26/SEP/2019
     Route: 042
     Dates: start: 20190926, end: 20190926
  5. CARBOPLATIN. [Suspect]
     Active Substance: CARBOPLATIN
     Indication: NON-SMALL CELL LUNG CANCER
     Dosage: UNK, 6 MG/MIN*ML MOST RECENT DOSE PRIOR TO EVNET ONSET ON 10/OCT/2019
     Route: 042
     Dates: start: 20191010, end: 20191010
  6. TILIDINE [Concomitant]
     Active Substance: TILIDINE
     Indication: PRODUCT USED FOR UNKNOWN INDICATION
     Dosage: 100 G,QD
     Route: 048
  7. DEXAMETHASONE. [Concomitant]
     Active Substance: DEXAMETHASONE
     Indication: CHRONIC OBSTRUCTIVE PULMONARY DISEASE
     Dosage: 24 MG, QD
     Route: 048
  8. ATEZOLIZUMAB. [Suspect]
     Active Substance: ATEZOLIZUMAB
     Indication: NON-SMALL CELL LUNG CANCER
     Dosage: 1200 MG, MOST RECENT DOSE PRIOR TO EVNET ONSET ON 26/SEP/2019
     Route: 041
     Dates: start: 20190926, end: 20190926

REACTIONS (2)
  - Pneumonitis [Recovered/Resolved with Sequelae]
  - Pulmonary infarction [Recovered/Resolved with Sequelae]

NARRATIVE: CASE EVENT DATE: 20191016
